FAERS Safety Report 13738790 (Version 1)
Quarter: 2017Q3

REPORT INFORMATION
  Report Type: Report from Study
  Country: US (occurrence: US)
  Receive Date: 20170710
  Receipt Date: 20170710
  Transmission Date: 20171127
  Serious: Yes (Hospitalization)
  Sender: FDA-Public Use
  Company Number: US-SAOL THERAPEUTICS-2017SAO00623

PATIENT
  Age: 57 Year
  Sex: Female

DRUGS (6)
  1. BACLOFEN. [Suspect]
     Active Substance: BACLOFEN
     Dosage: 90.02 ?G, \DAY
     Route: 037
     Dates: start: 20120610
  2. DILAUDID [Suspect]
     Active Substance: HYDROMORPHONE HYDROCHLORIDE
     Dosage: 225.05 ?G, \DAY
     Route: 037
     Dates: start: 20120610
  3. BUPIVACAINE. [Suspect]
     Active Substance: BUPIVACAINE
     Dosage: 6.1215 MG, \DAY
     Route: 037
     Dates: start: 20120610
  4. BACLOFEN. [Suspect]
     Active Substance: BACLOFEN
     Dosage: 100.02 ?G, \DAY
     Route: 037
     Dates: start: 20120608, end: 20120610
  5. BUPIVACAINE. [Suspect]
     Active Substance: BUPIVACAINE
     Dosage: 6.8017 MG, \DAY
     Route: 037
     Dates: start: 20120608, end: 20120610
  6. DILAUDID [Suspect]
     Active Substance: HYDROMORPHONE HYDROCHLORIDE
     Dosage: 250.06 ?G, \DAY
     Route: 037
     Dates: start: 20120608, end: 20120610

REACTIONS (4)
  - Dizziness [Recovered/Resolved]
  - Vomiting [Recovered/Resolved]
  - Nausea [Recovered/Resolved]
  - Post lumbar puncture syndrome [Recovered/Resolved]

NARRATIVE: CASE EVENT DATE: 20120610
